FAERS Safety Report 8041139-1 (Version None)
Quarter: 2012Q1

REPORT INFORMATION
  Report Type: 
  Country: None (occurrence: None)
  Receive Date: 20120112
  Receipt Date: 20110411
  Transmission Date: 20120608
  Serious: Yes (Hospitalization)
  Sender: FDA-Public Use
  Company Number: CA-JNJFOC-20110405331

PATIENT
  Sex: Male

DRUGS (7)
  1. METHOTREXATE [Concomitant]
  2. SIMPONI [Suspect]
     Indication: RHEUMATOID ARTHRITIS
     Route: 058
     Dates: start: 20110310
  3. FOLIC ACID [Concomitant]
  4. FLOMAX [Concomitant]
     Indication: PROSTATIC DISORDER
  5. AVODART [Concomitant]
     Indication: PROSTATIC DISORDER
  6. NAPROXEN [Concomitant]
  7. PLAQUENIL [Concomitant]

REACTIONS (1)
  - CORONARY ARTERY BYPASS [None]
